FAERS Safety Report 14243442 (Version 1)
Quarter: 2017Q4

REPORT INFORMATION
  Report Type: Other
  Country: US (occurrence: US)
  Receive Date: 20171201
  Receipt Date: 20171201
  Transmission Date: 20180321
  Serious: Yes (Life-Threatening)
  Sender: FDA-Public Use
  Company Number: US-ALSI-201700421

PATIENT
  Age: 20 Year
  Sex: Male

DRUGS (1)
  1. HELIUM. [Suspect]
     Active Substance: HELIUM
     Indication: SUICIDE ATTEMPT
     Route: 055

REACTIONS (2)
  - Loss of consciousness [Recovered/Resolved]
  - Suicide attempt [Recovered/Resolved]
